FAERS Safety Report 6075089-7 (Version None)
Quarter: 2009Q1

REPORT INFORMATION
  Report Type: 
  Country: None (occurrence: None)
  Receive Date: 20090210
  Receipt Date: 20090210
  Transmission Date: 20090719
  Serious: Yes (Other)
  Sender: FDA-Public Use
  Company Number: None

PATIENT
  Age: 65 Year
  Sex: Male

DRUGS (2)
  1. RAPTIVA [Suspect]
     Indication: PSORIASIS
     Dosage: ONE EVERY WEEK SQ
     Route: 058
     Dates: start: 20071219, end: 20081030
  2. QUINAPRIL/HCTZ [Concomitant]

REACTIONS (1)
  - NEOPLASM MALIGNANT [None]
